FAERS Safety Report 4983585-6 (Version None)
Quarter: 2006Q2

REPORT INFORMATION
  Report Type: 
  Country: None (occurrence: None)
  Receive Date: 20060426
  Receipt Date: 20001019
  Transmission Date: 20061013
  Serious: Yes (Life-Threatening, Hospitalization)
  Sender: FDA-Public Use
  Company Number: CA-ROCHE-247795

PATIENT
  Age: 25 Year
  Sex: Male
  Weight: 77.1 kg

DRUGS (2)
  1. ACCUTANE [Suspect]
     Indication: ACNE
     Route: 048
     Dates: start: 19990315
  2. ACCUTANE [Suspect]
     Route: 048
     Dates: start: 19981201, end: 19990315

REACTIONS (1)
  - MYOCARDIAL INFARCTION [None]
